FAERS Safety Report 6712469-8 (Version None)
Quarter: 2010Q2

REPORT INFORMATION
  Report Type: 
  Country: None (occurrence: None)
  Receive Date: 20100506
  Receipt Date: 20100427
  Transmission Date: 20101027
  Serious: No
  Sender: FDA-Public Use
  Company Number: US-BIOGENIDEC-2010BI013911

PATIENT
  Age: 54 Year
  Sex: Male

DRUGS (2)
  1. AVONEX [Suspect]
     Indication: MULTIPLE SCLEROSIS
     Route: 030
     Dates: start: 20000701, end: 20050101
  2. AVONEX [Suspect]
     Route: 030
     Dates: start: 20050101

REACTIONS (2)
  - BURNING SENSATION [None]
  - FEELING ABNORMAL [None]
